FAERS Safety Report 18533870 (Version 1)
Quarter: 2020Q4

REPORT INFORMATION
  Report Type: Spontaneous
  Country: DE (occurrence: DE)
  Receive Date: 20201122
  Receipt Date: 20201122
  Transmission Date: 20210114
  Serious: Yes (Disabling)
  Sender: FDA-Public Use
  Company Number: None

PATIENT
  Age: 49 Year
  Sex: Male
  Weight: 78 kg

DRUGS (1)
  1. CIPROFLOXACIN. [Suspect]
     Active Substance: CIPROFLOXACIN
     Indication: PRODUCT USED FOR UNKNOWN INDICATION
     Route: 048
     Dates: start: 20170612, end: 20170624

REACTIONS (12)
  - Nervousness [None]
  - Stress [None]
  - Insomnia [None]
  - Back pain [None]
  - Blood magnesium decreased [None]
  - Musculoskeletal discomfort [None]
  - Vagus nerve disorder [None]
  - Tinnitus [None]
  - Weight decreased [None]
  - Serotonin deficiency [None]
  - Neurotoxicity [None]
  - Dysbiosis [None]

NARRATIVE: CASE EVENT DATE: 20170920
